FAERS Safety Report 18453952 (Version 7)
Quarter: 2021Q3

REPORT INFORMATION
  Report Type: Report from Study
  Country: CA (occurrence: CA)
  Receive Date: 20201102
  Receipt Date: 20210826
  Transmission Date: 20211014
  Serious: Yes (Other)
  Sender: FDA-Public Use
  Company Number: CA-SHIRE-CA202014266AA

PATIENT
  Age: 5 Year
  Sex: Male
  Weight: 20 kg

DRUGS (31)
  1. PEGYLATED COAGULATION FACTOR VIII [Suspect]
     Active Substance: ANTIHEMOPHILIC FACTOR, PEGYLATED (MW 20000) HUMAN SEQUENCE RECOMBINANT
     Dosage: 1000 INTERNATIONAL UNIT, 3X A WEEK
     Route: 065
     Dates: start: 20200424
  2. PEGYLATED COAGULATION FACTOR VIII [Suspect]
     Active Substance: ANTIHEMOPHILIC FACTOR, PEGYLATED (MW 20000) HUMAN SEQUENCE RECOMBINANT
     Dosage: 1000 INTERNATIONAL UNIT, 3X A WEEK
     Route: 065
     Dates: start: 20200424
  3. PEGYLATED COAGULATION FACTOR VIII [Suspect]
     Active Substance: ANTIHEMOPHILIC FACTOR, PEGYLATED (MW 20000) HUMAN SEQUENCE RECOMBINANT
     Dosage: 1000 INTERNATIONAL UNIT, 3X A WEEK
     Route: 065
     Dates: start: 20200424
  4. PEGYLATED COAGULATION FACTOR VIII [Suspect]
     Active Substance: ANTIHEMOPHILIC FACTOR, PEGYLATED (MW 20000) HUMAN SEQUENCE RECOMBINANT
     Dosage: 1000 MILLIGRAM, 3X A WEEK
     Route: 065
     Dates: start: 20200424
  5. PEGYLATED COAGULATION FACTOR VIII [Suspect]
     Active Substance: ANTIHEMOPHILIC FACTOR, PEGYLATED (MW 20000) HUMAN SEQUENCE RECOMBINANT
     Dosage: 1500 INTERNATIONAL UNIT, 3/WEEK
     Route: 065
     Dates: start: 20200424
  6. PEGYLATED COAGULATION FACTOR VIII [Suspect]
     Active Substance: ANTIHEMOPHILIC FACTOR, PEGYLATED (MW 20000) HUMAN SEQUENCE RECOMBINANT
     Dosage: 1500 INTERNATIONAL UNIT, 3/WEEK
     Route: 065
     Dates: start: 20200424
  7. PEGYLATED COAGULATION FACTOR VIII [Suspect]
     Active Substance: ANTIHEMOPHILIC FACTOR, PEGYLATED (MW 20000) HUMAN SEQUENCE RECOMBINANT
     Dosage: 1500 INTERNATIONAL UNIT, 3/WEEK
     Route: 065
     Dates: start: 20200424
  8. PEGYLATED COAGULATION FACTOR VIII [Suspect]
     Active Substance: ANTIHEMOPHILIC FACTOR, PEGYLATED (MW 20000) HUMAN SEQUENCE RECOMBINANT
     Dosage: 1000 INTERNATIONAL UNIT, 3X A WEEK
     Route: 065
     Dates: start: 20200424
  9. PEGYLATED COAGULATION FACTOR VIII [Suspect]
     Active Substance: ANTIHEMOPHILIC FACTOR, PEGYLATED (MW 20000) HUMAN SEQUENCE RECOMBINANT
     Dosage: 1000 MILLIGRAM, 3X A WEEK
     Route: 065
     Dates: start: 20200424
  10. PEGYLATED COAGULATION FACTOR VIII [Suspect]
     Active Substance: ANTIHEMOPHILIC FACTOR, PEGYLATED (MW 20000) HUMAN SEQUENCE RECOMBINANT
     Indication: FACTOR VIII DEFICIENCY
     Dosage: 1000 INTERNATIONAL UNIT (OVER 1 MIN EVERY 3 DAYS)
     Route: 065
     Dates: start: 20151225
  11. PEGYLATED COAGULATION FACTOR VIII [Suspect]
     Active Substance: ANTIHEMOPHILIC FACTOR, PEGYLATED (MW 20000) HUMAN SEQUENCE RECOMBINANT
     Indication: FACTOR VIII DEFICIENCY
     Dosage: 1000 INTERNATIONAL UNIT (OVER 1 MIN EVERY 3 DAYS)
     Route: 065
     Dates: start: 20151225
  12. PEGYLATED COAGULATION FACTOR VIII [Suspect]
     Active Substance: ANTIHEMOPHILIC FACTOR, PEGYLATED (MW 20000) HUMAN SEQUENCE RECOMBINANT
     Dosage: 1000 INTERNATIONAL UNIT, 3X A WEEK
     Route: 065
     Dates: start: 20200418
  13. PEGYLATED COAGULATION FACTOR VIII [Suspect]
     Active Substance: ANTIHEMOPHILIC FACTOR, PEGYLATED (MW 20000) HUMAN SEQUENCE RECOMBINANT
     Dosage: 1000 INTERNATIONAL UNIT, 3X A WEEK
     Route: 065
     Dates: start: 20200513
  14. PEGYLATED COAGULATION FACTOR VIII [Suspect]
     Active Substance: ANTIHEMOPHILIC FACTOR, PEGYLATED (MW 20000) HUMAN SEQUENCE RECOMBINANT
     Dosage: 1500 INTERNATIONAL UNIT, 3/WEEK
     Route: 065
     Dates: start: 20200424
  15. PEGYLATED COAGULATION FACTOR VIII [Suspect]
     Active Substance: ANTIHEMOPHILIC FACTOR, PEGYLATED (MW 20000) HUMAN SEQUENCE RECOMBINANT
     Indication: FACTOR VIII DEFICIENCY
     Dosage: 1000 INTERNATIONAL UNIT (OVER 1 MIN EVERY 3 DAYS)
     Route: 065
     Dates: start: 20151225
  16. PEGYLATED COAGULATION FACTOR VIII [Suspect]
     Active Substance: ANTIHEMOPHILIC FACTOR, PEGYLATED (MW 20000) HUMAN SEQUENCE RECOMBINANT
     Dosage: 1000 INTERNATIONAL UNIT, 3X A WEEK
     Route: 065
     Dates: start: 20200418
  17. PEGYLATED COAGULATION FACTOR VIII [Suspect]
     Active Substance: ANTIHEMOPHILIC FACTOR, PEGYLATED (MW 20000) HUMAN SEQUENCE RECOMBINANT
     Dosage: 1000 INTERNATIONAL UNIT, 3X A WEEK
     Route: 065
     Dates: start: 20200418
  18. PEGYLATED COAGULATION FACTOR VIII [Suspect]
     Active Substance: ANTIHEMOPHILIC FACTOR, PEGYLATED (MW 20000) HUMAN SEQUENCE RECOMBINANT
     Dosage: 1000 INTERNATIONAL UNIT, 3X A WEEK
     Route: 065
     Dates: start: 20200513
  19. PEGYLATED COAGULATION FACTOR VIII [Suspect]
     Active Substance: ANTIHEMOPHILIC FACTOR, PEGYLATED (MW 20000) HUMAN SEQUENCE RECOMBINANT
     Dosage: 1000 INTERNATIONAL UNIT, 3X A WEEK
     Route: 065
     Dates: start: 20200424
  20. PEGYLATED COAGULATION FACTOR VIII [Suspect]
     Active Substance: ANTIHEMOPHILIC FACTOR, PEGYLATED (MW 20000) HUMAN SEQUENCE RECOMBINANT
     Dosage: 1000 MILLIGRAM, 3X A WEEK
     Route: 065
     Dates: start: 20200424
  21. PEGYLATED COAGULATION FACTOR VIII [Suspect]
     Active Substance: ANTIHEMOPHILIC FACTOR, PEGYLATED (MW 20000) HUMAN SEQUENCE RECOMBINANT
     Dosage: 1000 INTERNATION UNIT
     Route: 065
     Dates: start: 20200424
  22. PEGYLATED COAGULATION FACTOR VIII [Suspect]
     Active Substance: ANTIHEMOPHILIC FACTOR, PEGYLATED (MW 20000) HUMAN SEQUENCE RECOMBINANT
     Dosage: 1000 INTERNATION UNIT
     Route: 065
     Dates: start: 20200424
  23. PEGYLATED COAGULATION FACTOR VIII [Suspect]
     Active Substance: ANTIHEMOPHILIC FACTOR, PEGYLATED (MW 20000) HUMAN SEQUENCE RECOMBINANT
     Dosage: 1000 INTERNATIONAL UNIT, 3X A WEEK
     Route: 065
     Dates: start: 20200424
  24. PEGYLATED COAGULATION FACTOR VIII [Suspect]
     Active Substance: ANTIHEMOPHILIC FACTOR, PEGYLATED (MW 20000) HUMAN SEQUENCE RECOMBINANT
     Dosage: 1000 INTERNATION UNIT
     Route: 065
     Dates: start: 20200424
  25. PEGYLATED COAGULATION FACTOR VIII [Suspect]
     Active Substance: ANTIHEMOPHILIC FACTOR, PEGYLATED (MW 20000) HUMAN SEQUENCE RECOMBINANT
     Dosage: 1500 INTERNATIONAL UNIT, 3/WEEK
     Route: 065
     Dates: start: 20200424
  26. ELOCTATE [Concomitant]
     Active Substance: (1-743)-(1638-2332)-BLOOD-COAGULATION FACTOR VIII (SYNTHETIC HUMAN) FUSION PROTEIN WITH IMMUNOGLOBULIN G1 (SYNTHETIC HUMAN FC DOMAIN FRAGMENT), (1444-6^),(1447-9^)-BIS(DISULFIDE) WITH IMMUNOGLOBULIN G1 (SYNTHETIC HUMAN FC DOMAIN FRAGMENT)
     Indication: PRODUCT USED FOR UNKNOWN INDICATION
     Dosage: UNK
     Route: 065
     Dates: start: 20200420
  27. PEGYLATED COAGULATION FACTOR VIII [Suspect]
     Active Substance: ANTIHEMOPHILIC FACTOR, PEGYLATED (MW 20000) HUMAN SEQUENCE RECOMBINANT
     Dosage: 1000 INTERNATIONAL UNIT, 3X A WEEK
     Route: 065
     Dates: start: 20200513
  28. PEGYLATED COAGULATION FACTOR VIII [Suspect]
     Active Substance: ANTIHEMOPHILIC FACTOR, PEGYLATED (MW 20000) HUMAN SEQUENCE RECOMBINANT
     Dosage: 1000 MILLIGRAM, 3X A WEEK
     Route: 065
     Dates: start: 20200424
  29. PEGYLATED COAGULATION FACTOR VIII [Suspect]
     Active Substance: ANTIHEMOPHILIC FACTOR, PEGYLATED (MW 20000) HUMAN SEQUENCE RECOMBINANT
     Dosage: 1000 MILLIGRAM, 3X A WEEK
     Route: 065
     Dates: start: 20200424
  30. PEGYLATED COAGULATION FACTOR VIII [Suspect]
     Active Substance: ANTIHEMOPHILIC FACTOR, PEGYLATED (MW 20000) HUMAN SEQUENCE RECOMBINANT
     Dosage: 1000 MILLIGRAM, 3X A WEEK
     Route: 065
     Dates: start: 20200424
  31. PEGYLATED COAGULATION FACTOR VIII [Suspect]
     Active Substance: ANTIHEMOPHILIC FACTOR, PEGYLATED (MW 20000) HUMAN SEQUENCE RECOMBINANT
     Dosage: 1500 INTERNATIONAL UNIT, 3/WEEK
     Route: 065
     Dates: start: 20200424

REACTIONS (15)
  - Wrong technique in product usage process [Unknown]
  - Infusion site haemorrhage [Not Recovered/Not Resolved]
  - Aggression [Unknown]
  - Anaemia [Unknown]
  - Head injury [Unknown]
  - Incision site swelling [Unknown]
  - Restlessness [Unknown]
  - Screaming [Unknown]
  - Drug ineffective [Unknown]
  - Affect lability [Unknown]
  - Inappropriate schedule of product administration [Not Recovered/Not Resolved]
  - Incorrect dose administered [Unknown]
  - Autism spectrum disorder [Unknown]
  - Agitation [Unknown]
  - Poor venous access [Not Recovered/Not Resolved]

NARRATIVE: CASE EVENT DATE: 202004
